FAERS Safety Report 5480799-6 (Version None)
Quarter: 2007Q4

REPORT INFORMATION
  Report Type: 
  Country: None (occurrence: None)
  Receive Date: 20071009
  Receipt Date: 20071001
  Transmission Date: 20080405
  Serious: Yes (Hospitalization)
  Sender: FDA-Public Use
  Company Number: FR-ROXANE LABORATORIES, INC-2007-BP-22216RO

PATIENT
  Age: 54 Year
  Sex: Male

DRUGS (4)
  1. PREDNISONE [Suspect]
     Indication: INTERVERTEBRAL DISC PROTRUSION
     Dosage: 60 MG /O.D.
     Route: 048
  2. LEVODOPA/CARDIDOPA [Concomitant]
     Indication: PARKINSON'S DISEASE
     Dosage: 200/25 MG, TID
  3. PIRIBEDIL [Concomitant]
     Indication: PARKINSON'S DISEASE
  4. AMANTADINE HCL [Concomitant]
     Indication: PARKINSON'S DISEASE

REACTIONS (4)
  - CONFUSIONAL STATE [None]
  - LACK OF SPONTANEOUS SPEECH [None]
  - NERVOUS SYSTEM DISORDER [None]
  - SOMNOLENCE [None]
